FAERS Safety Report 5922976-3 (Version None)
Quarter: 2008Q4

REPORT INFORMATION
  Report Type: 
  Country: None (occurrence: None)
  Receive Date: 20081018
  Receipt Date: 20081007
  Transmission Date: 20090506
  Serious: No
  Sender: FDA-Public Use
  Company Number: US-PFIZER INC-2008045189

PATIENT
  Sex: Male
  Weight: 68.9 kg

DRUGS (7)
  1. ZYVOX [Suspect]
     Indication: LOCALISED INFECTION
     Route: 048
     Dates: start: 20080516, end: 20080523
  2. ZYVOX [Suspect]
     Indication: INFECTED SKIN ULCER
  3. GLUCOVANCE [Concomitant]
     Indication: DIABETES MELLITUS
  4. HYZAAR [Concomitant]
     Indication: HYPERTENSION
  5. LIPITOR [Concomitant]
     Indication: BLOOD CHOLESTEROL INCREASED
  6. COSOPT [Concomitant]
  7. XALATAN [Concomitant]
     Indication: GLAUCOMA

REACTIONS (2)
  - OROPHARYNGEAL PAIN [None]
  - VIRAL PHARYNGITIS [None]
